FAERS Safety Report 10049667 (Version 5)
Quarter: 2014Q2

REPORT INFORMATION
  Report Type: Report from Study
  Country: CN (occurrence: CN)
  Receive Date: 20140401
  Receipt Date: 20140513
  Transmission Date: 20141212
  Serious: Yes (Death, Life-Threatening)
  Sender: FDA-Public Use
  Company Number: CN-SA-2014SA039359

PATIENT
  Age: 80 Year
  Sex: Male
  Weight: 71 kg

DRUGS (10)
  1. DOCETAXEL [Suspect]
     Indication: PROSTATE CANCER
     Route: 065
     Dates: start: 20130810, end: 20130810
  2. DOCETAXEL [Suspect]
     Indication: PROSTATE CANCER
     Route: 065
     Dates: start: 20131108, end: 20131108
  3. DOCETAXEL [Suspect]
     Indication: PROSTATE CANCER
     Route: 065
     Dates: start: 20130902, end: 20131016
  4. PREDNISONE [Suspect]
     Indication: PROSTATE CANCER
     Route: 065
     Dates: start: 20130811, end: 20131106
  5. FELODIPINE [Concomitant]
     Indication: HYPERTENSION
     Route: 048
     Dates: start: 20131108, end: 201312
  6. MORPHINE SULFATE [Concomitant]
     Route: 048
     Dates: start: 20131114, end: 201312
  7. ACETAMINOPHEN [Concomitant]
     Route: 048
     Dates: start: 20131114, end: 201312
  8. FENTANYL [Concomitant]
     Dosage: DOSE: 4.2/3 DAY
     Dates: start: 20131121, end: 201312
  9. ENANTONE [Concomitant]
     Indication: PROSTATE CANCER
     Dates: start: 20130220, end: 201312
  10. DEXAMETHASONE [Concomitant]
     Dates: start: 20130809, end: 20131108

REACTIONS (1)
  - Coma [Fatal]
